FAERS Safety Report 10724013 (Version 3)
Quarter: 2015Q1

REPORT INFORMATION
  Report Type: Spontaneous
  Country: US (occurrence: US)
  Receive Date: 20150120
  Receipt Date: 20150205
  Transmission Date: 20150721
  Serious: Yes (Other)
  Sender: FDA-Public Use
  Company Number: US-BAXTER-2015BAX002315

PATIENT
  Sex: Male

DRUGS (1)
  1. DIANEAL LOW CALCIUM PERITONEAL DIALYSIS SOLUTION WITH DEXTROSE [Suspect]
     Active Substance: CALCIUM CHLORIDE\DEXTROSE\MAGNESIUM CHLORIDE\SODIUM CHLORIDE\SODIUM LACTATE
     Indication: PERITONEAL DIALYSIS
     Route: 033

REACTIONS (9)
  - Fall [Unknown]
  - Asthenia [Unknown]
  - Blood glucose decreased [Unknown]
  - Cough [Unknown]
  - Multiple allergies [Unknown]
  - Haemarthrosis [Unknown]
  - Cerebrovascular accident [Unknown]
  - Balance disorder [Unknown]
  - Joint injury [Unknown]
